FAERS Safety Report 7781543-X (Version None)
Quarter: 2011Q3

REPORT INFORMATION
  Report Type: 
  Country: None (occurrence: None)
  Receive Date: 20110927
  Receipt Date: 20110926
  Transmission Date: 20111222
  Serious: Yes (Other)
  Sender: FDA-Public Use
  Company Number: DE-PFIZER INC-2011144537

PATIENT
  Age: 52 Year
  Sex: Female
  Weight: 94 kg

DRUGS (7)
  1. VARENICLINE TARTRATE [Suspect]
     Dosage: UNK
  2. SALBUTAMOL [Concomitant]
     Dosage: UNK
  3. SPIRIVA [Concomitant]
     Dosage: 18 UG, UNK
  4. VERAPAMIL - SLOW RELEASE [Concomitant]
     Dosage: 120 UNK, UNK
  5. RAMIPRIL/HYDROCHLOROTHIAZIDE [Concomitant]
     Dosage: 5/25
  6. METFORMIN [Concomitant]
     Dosage: 1000 MG, UNK
  7. GLIMEPIRIDE [Concomitant]
     Dosage: 3 MG, UNK

REACTIONS (2)
  - BLOOD GLUCOSE FLUCTUATION [None]
  - BLOOD GLUCOSE INCREASED [None]
